FAERS Safety Report 8175076-9 (Version None)
Quarter: 2012Q1

REPORT INFORMATION
  Report Type: 
  Country: None (occurrence: None)
  Receive Date: 20120227
  Receipt Date: 20120213
  Transmission Date: 20120608
  Serious: Yes (Hospitalization)
  Sender: FDA-Public Use
  Company Number: JP-1189918

PATIENT
  Age: 63 Year
  Sex: Female

DRUGS (4)
  1. TEARBALANCE [Concomitant]
  2. BETAMETHASONE [Concomitant]
  3. KARY UNI [Concomitant]
  4. TRAVATAN [Suspect]
     Indication: GLAUCOMA
     Dosage: 1 GTT QD OU OPHTHALMIC
     Route: 047
     Dates: start: 20100514, end: 20110105

REACTIONS (1)
  - INTRAOCULAR PRESSURE INCREASED [None]
